FAERS Safety Report 5708286-8 (Version None)
Quarter: 2008Q2

REPORT INFORMATION
  Report Type: 
  Country: None (occurrence: None)
  Receive Date: 20080417
  Receipt Date: 20080326
  Transmission Date: 20081010
  Serious: Yes (Hospitalization)
  Sender: FDA-Public Use
  Company Number: SE-MERCK-0803SWE00043

PATIENT
  Age: 35 Day
  Sex: Female
  Weight: 1 kg

DRUGS (8)
  1. CANCIDAS [Suspect]
     Indication: SEPSIS
     Route: 041
     Dates: start: 20071217, end: 20071220
  2. CANCIDAS [Suspect]
     Route: 041
     Dates: start: 20071101, end: 20071201
  3. NEUPOGEN [Suspect]
     Route: 051
     Dates: start: 20071217, end: 20071217
  4. AMBISOME [Suspect]
     Indication: SEPSIS
     Route: 041
     Dates: start: 20071211, end: 20071220
  5. VANCOMYCIN [Concomitant]
     Route: 065
  6. FUROSEMIDE [Concomitant]
     Route: 065
  7. GENTAMICIN [Concomitant]
     Route: 065
  8. MERONEM [Concomitant]
     Route: 065

REACTIONS (2)
  - MEDICATION ERROR [None]
  - MYOCARDITIS [None]
